FAERS Safety Report 6225672-0 (Version None)
Quarter: 2009Q2

REPORT INFORMATION
  Report Type: 
  Country: None (occurrence: None)
  Receive Date: 20090612
  Receipt Date: 20090428
  Transmission Date: 20091009
  Serious: No
  Sender: FDA-Public Use
  Company Number: US-ABBOTT-09P-163-0570678-00

PATIENT
  Sex: Male
  Weight: 104.42 kg

DRUGS (5)
  1. HUMIRA [Suspect]
     Indication: PSORIASIS
     Route: 058
     Dates: start: 20090201
  2. HUMIRA [Suspect]
     Indication: PSORIATIC ARTHROPATHY
     Route: 058
     Dates: start: 20070101, end: 20081101
  3. ZETIA [Concomitant]
     Indication: BLOOD CHOLESTEROL
     Dosage: UNABLE TO RECALL STRENGTH
     Route: 048
  4. UNKNOWN BLOOD PRESSURE MEDICATION [Concomitant]
     Indication: HYPERTENSION
     Route: 048
  5. ALLOPURINOL [Concomitant]
     Indication: GOUT
     Route: 048

REACTIONS (3)
  - DRUG INEFFECTIVE [None]
  - INFLUENZA [None]
  - PSORIASIS [None]
